FAERS Safety Report 6229458-2 (Version None)
Quarter: 2009Q2

REPORT INFORMATION
  Report Type: 
  Country: None (occurrence: None)
  Receive Date: 20090615
  Receipt Date: 20090603
  Transmission Date: 20091009
  Serious: Yes (Hospitalization)
  Sender: FDA-Public Use
  Company Number: A0743342A

PATIENT
  Age: 49 Year
  Sex: Female
  Weight: 90.9 kg

DRUGS (6)
  1. AVANDIA [Suspect]
     Indication: DIABETES MELLITUS
     Dosage: 4MG PER DAY
     Route: 048
     Dates: start: 20050101, end: 20060401
  2. INSULIN [Concomitant]
  3. ABILIFY [Concomitant]
  4. RISPERDAL [Concomitant]
  5. FLUOXETINE HCL [Concomitant]
  6. METFORMIN HYDROCHLORIDE [Concomitant]

REACTIONS (5)
  - ARRHYTHMIA [None]
  - CARDIAC FAILURE CONGESTIVE [None]
  - CORONARY ARTERY DISEASE [None]
  - MYOCARDIAL INFARCTION [None]
  - VENTRICULAR TACHYCARDIA [None]
